FAERS Safety Report 13461291 (Version 1)
Quarter: 2017Q2

REPORT INFORMATION
  Report Type: Spontaneous
  Country: US (occurrence: US)
  Receive Date: 20170420
  Receipt Date: 20170420
  Transmission Date: 20170830
  Serious: No
  Sender: FDA-Public Use
  Company Number: US-BAYER-2017-068990

PATIENT
  Age: 66 Year
  Sex: Female
  Weight: 69.98 kg

DRUGS (4)
  1. UNIVOL [ALUMINIUM HYDROXIDE,MAGNESIUM HYDROXIDE] [Concomitant]
  2. ALIGN [Concomitant]
     Active Substance: BIFIDOBACTERIUM LONGUM SUBSP. INFANTIS
     Indication: GASTROINTESTINAL DISORDER
     Route: 048
  3. ZEGERID OTC CAPSULES [Suspect]
     Active Substance: OMEPRAZOLE\SODIUM BICARBONATE
     Indication: GASTROINTESTINAL DISORDER
     Dosage: 2 DF, QD
     Route: 048
     Dates: start: 2002
  4. SYNTHROID [Concomitant]
     Active Substance: LEVOTHYROXINE SODIUM
     Route: 048

REACTIONS (4)
  - Poor quality drug administered [Recovered/Resolved]
  - Product physical issue [Recovered/Resolved]
  - Product use issue [Unknown]
  - Off label use [Unknown]
